FAERS Safety Report 21777007 (Version 4)
Quarter: 2025Q4

REPORT INFORMATION
  Report Type: Report from Study
  Country: CO (occurrence: CO)
  Receive Date: 20221226
  Receipt Date: 20251111
  Transmission Date: 20260117
  Serious: Yes (Other)
  Sender: ABBVIE
  Company Number: CO-ABBVIE-4249551

PATIENT
  Age: 69 Year
  Sex: Female
  Weight: 79 kg

DRUGS (2)
  1. SKYRIZI [Suspect]
     Active Substance: RISANKIZUMAB-RZAA
     Indication: Psoriasis
     Dosage: FORM STRENGTH: 150 MG, SOLUTION FOR INJECTION IN PRE-FILLED SYRINGE
     Route: 058
     Dates: start: 20230817, end: 20250806
  2. SKYRIZI [Suspect]
     Active Substance: RISANKIZUMAB-RZAA
     Dosage: FORM STRENGTH: 75 MG, SOLUTION FOR INJECTION IN PRE-FILLED SYRINGE
     Route: 058
     Dates: start: 20220914

REACTIONS (10)
  - Tendon injury [Unknown]
  - Joint effusion [Not Recovered/Not Resolved]
  - Gout [Not Recovered/Not Resolved]
  - Pain [Recovered/Resolved]
  - Inflammation [Unknown]
  - Arthritis [Not Recovered/Not Resolved]
  - Arthropathy [Not Recovered/Not Resolved]
  - Oxygen saturation decreased [Recovered/Resolved]
  - Mite allergy [Unknown]
  - Asthma [Unknown]

NARRATIVE: CASE EVENT DATE: 20221222
